FAERS Safety Report 9700140 (Version 1)
Quarter: 2013Q4

REPORT INFORMATION
  Report Type: Spontaneous
  Country: PK (occurrence: PK)
  Receive Date: 20131121
  Receipt Date: 20131121
  Transmission Date: 20140711
  Serious: Yes (Death)
  Sender: FDA-Public Use
  Company Number: PK-009507513-1311PAK004821

PATIENT
  Sex: 0

DRUGS (2)
  1. PAVULON [Suspect]
  2. DEXAMETHASONE [Suspect]

REACTIONS (3)
  - Death [Fatal]
  - Product name confusion [Fatal]
  - Wrong drug administered [Fatal]
